FAERS Safety Report 5369269-3 (Version None)
Quarter: 2007Q2

REPORT INFORMATION
  Report Type: 
  Country: None (occurrence: None)
  Receive Date: 20070620
  Receipt Date: 20070605
  Transmission Date: 20071010
  Serious: Yes (Other)
  Sender: FDA-Public Use
  Company Number: S07-CAN-02613-01

PATIENT
  Age: 69 Year
  Sex: Male

DRUGS (19)
  1. TIAZAC [Suspect]
     Dosage: 240 MG QD PO
     Route: 048
  2. ACETAMINOPHEN [Concomitant]
  3. ALLOPURINOL [Concomitant]
  4. ATROVENT [Concomitant]
  5. BRIMONIDINE TARTRATE [Concomitant]
  6. BUDESONIDE [Concomitant]
  7. FUROSEMIDE [Concomitant]
  8. IBUPROFEN [Concomitant]
  9. LIPITOR [Concomitant]
  10. METOPROLOL SUCCINATE [Concomitant]
  11. MOXIFLOXACIN HCL [Concomitant]
  12. OFLOXACIN [Concomitant]
  13. TOBRADEX (TOBRAMYCIN AND DEXAMETHASONE) [Concomitant]
  14. RAMIPRIL [Concomitant]
  15. SALBUTAMOL [Concomitant]
  16. THEOPHYLLINE [Concomitant]
  17. TOBRADEX (TOBRAMYCIN AND DEXAMETHASONE) [Concomitant]
  18. WARFARIN SODIUM [Concomitant]
  19. NITROGLYCERIN [Concomitant]

REACTIONS (1)
  - STEVENS-JOHNSON SYNDROME [None]
